FAERS Safety Report 25775018 (Version 1)
Quarter: 2025Q3

REPORT INFORMATION
  Report Type: Report from Study
  Country: BR (occurrence: BR)
  Receive Date: 20250909
  Receipt Date: 20250909
  Transmission Date: 20251021
  Serious: Yes (Hospitalization)
  Sender: BIOGEN
  Company Number: BR-BIOGEN-2025BI01322739

PATIENT
  Sex: Female
  Weight: 73 kg

DRUGS (3)
  1. TYSABRI [Suspect]
     Active Substance: NATALIZUMAB
     Indication: Multiple sclerosis
     Route: 050
     Dates: start: 201802
  2. WEGOVY [Suspect]
     Active Substance: SEMAGLUTIDE
     Indication: Weight increased
     Route: 050
     Dates: start: 202501
  3. PROPOFOL [Concomitant]
     Active Substance: PROPOFOL
     Indication: Magnetic resonance imaging
     Route: 050

REACTIONS (9)
  - Secondary progressive multiple sclerosis [Unknown]
  - Urinary incontinence [Not Recovered/Not Resolved]
  - Hypoaesthesia oral [Recovered/Resolved]
  - Nerve injury [Recovered/Resolved]
  - Respiratory tract infection [Unknown]
  - Impaired reasoning [Not Recovered/Not Resolved]
  - Mental impairment [Not Recovered/Not Resolved]
  - Disorientation [Not Recovered/Not Resolved]
  - Dizziness [Recovered/Resolved]

NARRATIVE: CASE EVENT DATE: 20250101
